FAERS Safety Report 4433910-X (Version None)
Quarter: 2004Q3

REPORT INFORMATION
  Report Type: 
  Country: None (occurrence: None)
  Receive Date: 20040825
  Receipt Date: 20040813
  Transmission Date: 20050211
  Serious: Yes (Hospitalization, Disabling)
  Sender: FDA-Public Use
  Company Number: HQWYE286616AUG04

PATIENT
  Age: 67 Year
  Sex: Male

DRUGS (6)
  1. TAZOBAC (PIPERACILLIN/TAZOBACTAM, INJECTION) [Suspect]
     Indication: TOXIC SHOCK SYNDROME
     Dosage: 2.5 G 3X PER 1 DAY
     Dates: start: 20040309, end: 20040309
  2. AUGMENTIN [Suspect]
     Indication: TOXIC SHOCK SYNDROME
     Dosage: 2.2 G 3X PER 1 DAY
     Dates: start: 20040309, end: 20040318
  3. HETASTARCH (HETASTARCH) [Suspect]
     Indication: TOXIC SHOCK SYNDROME
     Dosage: 6.5 L OVER 7 DAYS
     Dates: start: 20040310, end: 20040316
  4. ACETAMINOPHEN [Suspect]
     Indication: TOXIC SHOCK SYNDROME
     Dosage: 1 G 4X PER 1 DAY
     Dates: start: 20040309, end: 20040317
  5. DALACIN V (CLINDAMYCIN PHOSPHATE) [Concomitant]
  6. DOBUTREX [Concomitant]

REACTIONS (7)
  - CONDITION AGGRAVATED [None]
  - HAEMODIALYSIS [None]
  - NEPHRITIS INTERSTITIAL [None]
  - NEPHROTIC SYNDROME [None]
  - RENAL IMPAIRMENT [None]
  - RENAL TUBULAR ATROPHY [None]
  - RENAL TUBULAR NECROSIS [None]
